FAERS Safety Report 5656236-5 (Version None)
Quarter: 2008Q1

REPORT INFORMATION
  Report Type: 
  Country: None (occurrence: None)
  Receive Date: 20080305
  Receipt Date: 20080206
  Transmission Date: 20080703
  Serious: Yes (Hospitalization)
  Sender: FDA-Public Use
  Company Number: 2008AL001114

PATIENT
  Age: 47 Year
  Sex: Female

DRUGS (5)
  1. TEMAZEPAM [Suspect]
     Indication: AGITATION
     Dosage: 10 MG; HS
     Dates: end: 20071014
  2. TEMAZEPAM [Suspect]
     Indication: INSOMNIA
     Dosage: 10 MG; HS
     Dates: end: 20071014
  3. LAMOTRIGINE [Concomitant]
  4. ZOPICLONE [Concomitant]
  5. RISPERIDONE [Concomitant]

REACTIONS (22)
  - AGITATION [None]
  - ATAXIA [None]
  - CHEST DISCOMFORT [None]
  - CHEST PAIN [None]
  - CHILLS [None]
  - DIPLOPIA [None]
  - DISCOMFORT [None]
  - DRUG WITHDRAWAL SYNDROME [None]
  - DYSPNOEA [None]
  - EMOTIONAL DISTRESS [None]
  - HEADACHE [None]
  - HEART RATE INCREASED [None]
  - HYPERTENSION [None]
  - IMPAIRED WORK ABILITY [None]
  - INSOMNIA [None]
  - MENTAL DISORDER [None]
  - MUSCLE TIGHTNESS [None]
  - MUSCLE TWITCHING [None]
  - NONSPECIFIC REACTION [None]
  - PALPITATIONS [None]
  - PERIPHERAL COLDNESS [None]
  - STROKE VOLUME INCREASED [None]
